FAERS Safety Report 22315257 (Version 1)
Quarter: 2023Q2

REPORT INFORMATION
  Report Type: Spontaneous
  Country: US (occurrence: None)
  Receive Date: 20230511
  Receipt Date: 20230511
  Transmission Date: 20230722
  Serious: Yes (Disabling)
  Sender: FDA-Public Use
  Company Number: None

PATIENT
  Sex: 0

DRUGS (1)
  1. DOTAREM [Suspect]
     Active Substance: GADOTERATE MEGLUMINE
     Indication: Magnetic resonance imaging

REACTIONS (19)
  - Contrast media reaction [None]
  - Loss of personal independence in daily activities [None]
  - Asthenia [None]
  - Tremor [None]
  - Nervousness [None]
  - Visual impairment [None]
  - Gastrointestinal disorder [None]
  - Skin burning sensation [None]
  - Sunburn [None]
  - Feeling cold [None]
  - Peripheral coldness [None]
  - Uterine pain [None]
  - Arthralgia [None]
  - Musculoskeletal stiffness [None]
  - Fatigue [None]
  - Nausea [None]
  - Rash [None]
  - Alopecia [None]
  - Chemical burn [None]

NARRATIVE: CASE EVENT DATE: 20230206
